FAERS Safety Report 6527749-9 (Version None)
Quarter: 2010Q1

REPORT INFORMATION
  Report Type: 
  Country: None (occurrence: None)
  Receive Date: 20100105
  Receipt Date: 20100105
  Transmission Date: 20100710
  Serious: No
  Sender: FDA-Public Use
  Company Number: None

PATIENT
  Age: 64 Year
  Sex: Female
  Weight: 61.6892 kg

DRUGS (9)
  1. CARBIDOPA AND LEVODOPA [Suspect]
     Indication: PARKINSON'S DISEASE
     Dosage: 25/100 6/DAY PO
     Route: 048
  2. CARBIDOPA AND LEVODOPA [Suspect]
     Indication: PARKINSON'S DISEASE
     Dosage: 25/100 ER ONCE HS PO
     Route: 048
  3. M.V.I. [Concomitant]
  4. COLACE [Concomitant]
  5. NORTRIPTYLINE [Concomitant]
  6. LEXAPRO [Concomitant]
  7. KLONOPIN [Concomitant]
  8. MOTRIN [Concomitant]
  9. BOTOX [Concomitant]

REACTIONS (3)
  - CONDITION AGGRAVATED [None]
  - PARKINSON'S DISEASE [None]
  - PRODUCT SUBSTITUTION ISSUE [None]
